FAERS Safety Report 6722852-2 (Version None)
Quarter: 2010Q2

REPORT INFORMATION
  Report Type: 
  Country: None (occurrence: None)
  Receive Date: 20100512
  Receipt Date: 20100512
  Transmission Date: 20101027
  Serious: No
  Sender: FDA-Public Use
  Company Number: None

PATIENT
  Age: 14 Year
  Sex: Male
  Weight: 41.5 kg

DRUGS (1)
  1. R-GENE 10 [Suspect]
     Indication: GROWTH HORMONE DEFICIENCY
     Dosage: 20GM 1 TIME IV DRIP
     Route: 041
     Dates: start: 20100510, end: 20100510

REACTIONS (3)
  - COUGH [None]
  - INFUSION RELATED REACTION [None]
  - SWOLLEN TONGUE [None]
